FAERS Safety Report 13134355 (Version 3)
Quarter: 2018Q4

REPORT INFORMATION
  Report Type: Spontaneous
  Country: PL (occurrence: PL)
  Receive Date: 20170120
  Receipt Date: 20181009
  Transmission Date: 20190204
  Serious: Yes (Hospitalization)
  Sender: FDA-Public Use
  Company Number: PHHY2017PL000939

PATIENT
  Age: 12 Year
  Sex: Female
  Weight: 32 kg

DRUGS (11)
  1. LOTEMAX [Suspect]
     Active Substance: LOTEPREDNOL ETABONATE
     Indication: KERATITIS
     Route: 061
  2. ERYTHROMYCIN. [Suspect]
     Active Substance: ERYTHROMYCIN
     Indication: KERATITIS
     Dosage: UNK
     Route: 061
  3. DEXAVEN [Suspect]
     Active Substance: DEXAMETHASONE
     Indication: KERATITIS
     Dosage: UNK
     Route: 065
  4. OPATANOL [Suspect]
     Active Substance: OLOPATADINE
     Indication: KERATITIS
     Route: 061
  5. TOBREX [Suspect]
     Active Substance: TOBRAMYCIN
     Indication: KERATITIS
     Dosage: UNK
     Route: 061
  6. OFTAQUIX [Suspect]
     Active Substance: LEVOFLOXACIN
     Indication: KERATITIS
     Route: 061
  7. DIFADOL [Suspect]
     Active Substance: DICLOFENAC SODIUM
     Indication: KERATITIS
     Dosage: UNK
     Route: 065
  8. TREHALOSE [Suspect]
     Active Substance: TREHALOSE
     Indication: KERATITIS
     Route: 061
  9. INDOCOLLYRE [Suspect]
     Active Substance: INDOMETHACIN
     Indication: KERATITIS
     Route: 061
  10. CORNEREGEL [Suspect]
     Active Substance: DEXPANTHENOL
     Indication: KERATITIS
     Route: 061
  11. CEFUROXIME. [Suspect]
     Active Substance: CEFUROXIME
     Indication: KERATITIS
     Route: 042

REACTIONS (3)
  - Drug ineffective [Unknown]
  - Keratitis [Recovering/Resolving]
  - Disease progression [Recovering/Resolving]
